FAERS Safety Report 9295529 (Version 1)
Quarter: 2013Q2

REPORT INFORMATION
  Report Type: Spontaneous
  Country: US (occurrence: US)
  Receive Date: 20130517
  Receipt Date: 20130517
  Transmission Date: 20140414
  Serious: Yes (Other)
  Sender: FDA-Public Use
  Company Number: US-PFIZER INC-2013148465

PATIENT
  Age: 88 Year
  Sex: Female
  Weight: 48.98 kg

DRUGS (2)
  1. DETROL LA [Suspect]
     Indication: POLLAKIURIA
     Dosage: UNK, 1X/DAY
     Route: 048
     Dates: start: 201305, end: 201305
  2. LISINOPRIL [Concomitant]
     Dosage: UNK

REACTIONS (3)
  - Oedema peripheral [Recovering/Resolving]
  - Gait disturbance [Recovering/Resolving]
  - Joint swelling [Recovering/Resolving]
